FAERS Safety Report 8902293 (Version 4)
Quarter: 2013Q1

REPORT INFORMATION
  Report Type: Spontaneous
  Country: NO (occurrence: NO)
  Receive Date: 20121113
  Receipt Date: 20130117
  Transmission Date: 20140127
  Serious: Yes (Disabling, Other)
  Sender: FDA-Public Use
  Company Number: PHHY2012NO103010

PATIENT
  Age: 50 Year
  Sex: Female

DRUGS (7)
  1. FEMARA [Suspect]
     Indication: BREAST CANCER
     Dosage: UNK
     Dates: start: 20120110, end: 201206
  2. AROMASIN [Suspect]
     Indication: BREAST CANCER
     Dosage: 3 MG, UNK
     Dates: start: 201206, end: 20120830
  3. AROMASIN [Suspect]
     Indication: BREAST CANCER FEMALE
     Dates: start: 201206, end: 20120830
  4. TAMOXIFEN [Suspect]
  5. TAMOXIFEN CITRATE [Suspect]
     Indication: BREAST CANCER
     Dosage: UNK
     Dates: start: 200805, end: 20120110
  6. MAREVAN [Concomitant]
     Indication: CARDIAC VALVE DISEASE
     Dosage: UNK UKN, UNK
     Dates: start: 1994
  7. MAREVAN [Concomitant]
     Indication: CARDIAC VALVE DISEASE

REACTIONS (19)
  - Musculoskeletal stiffness [Recovering/Resolving]
  - Gait disturbance [Recovering/Resolving]
  - Meniscus injury [Recovering/Resolving]
  - Pulmonary congestion [Recovering/Resolving]
  - Chest discomfort [Recovering/Resolving]
  - Ligament pain [Recovering/Resolving]
  - Infection [Recovering/Resolving]
  - Hot flush [Recovering/Resolving]
  - Arthralgia [Recovering/Resolving]
  - Myalgia [Recovering/Resolving]
  - Dyspnoea [Recovering/Resolving]
  - Pruritus [Recovering/Resolving]
  - Urticaria [Recovering/Resolving]
  - Somnolence [Recovering/Resolving]
  - Rash [Recovering/Resolving]
  - Insomnia [Recovering/Resolving]
  - Fatigue [Recovering/Resolving]
  - Alopecia [Recovering/Resolving]
  - Pyrexia [Recovering/Resolving]
